FAERS Safety Report 19909914 (Version 13)
Quarter: 2024Q3

REPORT INFORMATION
  Report Type: Report from Study
  Country: JP (occurrence: JP)
  Receive Date: 20211003
  Receipt Date: 20240917
  Transmission Date: 20241016
  Serious: Yes (Hospitalization, Other)
  Sender: NOVARTIS
  Company Number: NVSJ2021JP014247

PATIENT
  Sex: Female
  Weight: 34.6 kg

DRUGS (7)
  1. MEKINIST [Suspect]
     Active Substance: TRAMETINIB DIMETHYL SULFOXIDE
     Indication: Gastrointestinal stromal tumour
     Dosage: 2 MG, QD
     Route: 048
     Dates: start: 20210519, end: 20210601
  2. MEKINIST [Suspect]
     Active Substance: TRAMETINIB DIMETHYL SULFOXIDE
     Dosage: 1.5 MG, QD
     Route: 048
     Dates: start: 20210616, end: 20210713
  3. MEKINIST [Suspect]
     Active Substance: TRAMETINIB DIMETHYL SULFOXIDE
     Dosage: 1.0 MG, QD
     Route: 048
     Dates: start: 20210804, end: 20210908
  4. MEKINIST [Suspect]
     Active Substance: TRAMETINIB DIMETHYL SULFOXIDE
     Dosage: 1.0 MG, QD
     Route: 048
     Dates: start: 20210922, end: 20220719
  5. SPIRONOLACTONE [Suspect]
     Active Substance: SPIRONOLACTONE
     Indication: Oedema peripheral
     Dosage: 25 MG, BID
     Route: 065
     Dates: start: 202110, end: 20220723
  6. AZOSEMIDE [Suspect]
     Active Substance: AZOSEMIDE
     Indication: Oedema peripheral
     Dosage: 60 MG, BID
     Route: 065
     Dates: start: 202110, end: 20220723
  7. FERROUS SULFATE [Concomitant]
     Active Substance: FERROUS SULFATE
     Indication: Iron deficiency anaemia
     Dosage: 105 MG, QD
     Route: 048
     Dates: start: 20210420, end: 2022

REACTIONS (15)
  - Anaemia [Recovered/Resolved]
  - Dizziness [Unknown]
  - Hyponatraemia [Recovered/Resolved]
  - Pneumonia [Recovering/Resolving]
  - Blood creatine phosphokinase increased [Recovered/Resolved]
  - Anaemia [Recovered/Resolved]
  - Hypothyroidism [Not Recovered/Not Resolved]
  - Deafness [Recovered/Resolved]
  - Fatigue [Recovered/Resolved]
  - Fatigue [Recovered/Resolved]
  - Blood creatine phosphokinase increased [Recovered/Resolved]
  - Blood creatine phosphokinase increased [Recovered/Resolved]
  - Oedema peripheral [Unknown]
  - Myalgia [Recovering/Resolving]
  - Lymphocyte count decreased [Recovered/Resolved]

NARRATIVE: CASE EVENT DATE: 20210101
